FAERS Safety Report 8248683-2 (Version None)
Quarter: 2012Q1

REPORT INFORMATION
  Report Type: 
  Country: None (occurrence: None)
  Receive Date: 20120331
  Receipt Date: 20120320
  Transmission Date: 20120608
  Serious: Yes (Hospitalization, Other)
  Sender: FDA-Public Use
  Company Number: PHHY2012PT002616

PATIENT
  Sex: Female

DRUGS (6)
  1. ATORVASTATIN [Concomitant]
     Route: 064
  2. METHYLDOPA [Concomitant]
     Route: 064
     Dates: start: 20110627
  3. SIMVASTATIN [Suspect]
     Route: 064
  4. YASMIN [Concomitant]
     Route: 064
  5. RASILEZ [Suspect]
     Route: 064
  6. INSULIN [Concomitant]
     Route: 064

REACTIONS (6)
  - VENTRICULAR SEPTAL DEFECT [None]
  - FOETAL EXPOSURE DURING PREGNANCY [None]
  - PREMATURE BABY [None]
  - FOETAL GROWTH RESTRICTION [None]
  - LOW BIRTH WEIGHT BABY [None]
  - NEONATAL RESPIRATORY DISTRESS SYNDROME [None]
